FAERS Safety Report 9179093 (Version 2)
Quarter: 2013Q2

REPORT INFORMATION
  Report Type: Report from Study
  Country: JP (occurrence: JP)
  Receive Date: 20130321
  Receipt Date: 20130503
  Transmission Date: 20140414
  Serious: Yes (Death)
  Sender: FDA-Public Use
  Company Number: JP-ROCHE-1204096

PATIENT
  Sex: Male

DRUGS (3)
  1. TORASEMIDE [Suspect]
     Indication: PRODUCT USED FOR UNKNOWN INDICATION
     Route: 048
  2. INSULIN [Concomitant]
     Route: 051
  3. SARPOGRELATE HYDROCHLORIDE [Concomitant]
     Route: 048
     Dates: start: 20100819, end: 20111227

REACTIONS (1)
  - Cardiac failure [Fatal]
